FAERS Safety Report 13853572 (Version 2)
Quarter: 2017Q4

REPORT INFORMATION
  Report Type: Report from Study
  Country: IT (occurrence: IT)
  Receive Date: 20170809
  Receipt Date: 20171128
  Transmission Date: 20180320
  Serious: Yes (Death, Hospitalization)
  Sender: FDA-Public Use
  Company Number: IT-BAYER-2016-228914

PATIENT
  Age: 66 Year
  Sex: Female
  Weight: 59 kg

DRUGS (7)
  1. STIVARGA [Suspect]
     Active Substance: REGORAFENIB
     Indication: COLORECTAL CANCER STAGE IV
     Dosage: 160 MG, QD (4 TABLETS OF 40MG)
     Dates: start: 20161005, end: 20161014
  2. TAVANIC [Concomitant]
     Active Substance: LEVOFLOXACIN
     Dosage: 750 MG, QD
     Dates: start: 20161103, end: 20161111
  3. RANITIDINE. [Concomitant]
     Active Substance: RANITIDINE
     Dosage: 150 MG, QD
     Dates: start: 20160406
  4. FLAGYL [Concomitant]
     Active Substance: METRONIDAZOLE\METRONIDAZOLE HYDROCHLORIDE
     Dosage: 1000 MG, QD
     Dates: start: 20161103, end: 20161111
  5. LEVOFLOXACIN. [Concomitant]
     Active Substance: LEVOFLOXACIN
     Dosage: 500 MG, QD
     Dates: start: 20161015, end: 20161027
  6. SOLDESAM [Concomitant]
     Active Substance: DEXAMETHASONE
     Dosage: 6 MG, QD
     Dates: start: 20151015, end: 20161020
  7. STIVARGA [Suspect]
     Active Substance: REGORAFENIB
     Indication: COLORECTAL CANCER STAGE IV
     Dosage: 120 MG, QD
     Dates: start: 20161015, end: 20161102

REACTIONS (3)
  - Death [Fatal]
  - Fatigue [Not Recovered/Not Resolved]
  - Vomiting [Not Recovered/Not Resolved]

NARRATIVE: CASE EVENT DATE: 20161021
